FAERS Safety Report 25664065 (Version 1)
Quarter: 2025Q3

REPORT INFORMATION
  Report Type: Spontaneous
  Country: US (occurrence: US)
  Receive Date: 20250811
  Receipt Date: 20250811
  Transmission Date: 20251021
  Serious: Yes (Other)
  Sender: ROCHE
  Company Number: US-ROCHE-10000350999

PATIENT
  Sex: Female

DRUGS (1)
  1. RITUXAN [Suspect]
     Active Substance: RITUXIMAB
     Indication: Granulomatosis with polyangiitis
     Dosage: 1000MG IN 1000ML, INFUSED SLOWLY
     Route: 042

REACTIONS (4)
  - Infusion related reaction [Unknown]
  - Granulomatosis with polyangiitis [Unknown]
  - Product administration error [Unknown]
  - Surgery [Unknown]
